FAERS Safety Report 8165651-X (Version None)
Quarter: 2012Q1

REPORT INFORMATION
  Report Type: 
  Country: None (occurrence: None)
  Receive Date: 20120223
  Receipt Date: 20120223
  Transmission Date: 20120608
  Serious: Yes (Other)
  Sender: FDA-Public Use
  Company Number: None

PATIENT
  Age: 60 Year
  Sex: Female
  Weight: 83.9154 kg

DRUGS (2)
  1. OXYCONTIN [Suspect]
     Indication: ABDOMINAL PAIN
     Dosage: 20 MG 3-4 X DAY  OVER 1 YEAR
  2. OXYCONTIN [Suspect]
     Indication: WITHDRAWAL SYNDROME
     Dosage: 20 MG 3-4 X DAY  OVER 1 YEAR

REACTIONS (2)
  - PAIN [None]
  - CONDITION AGGRAVATED [None]
